FAERS Safety Report 7182955-8 (Version None)
Quarter: 2010Q4

REPORT INFORMATION
  Report Type: 
  Country: None (occurrence: None)
  Receive Date: 20101222
  Receipt Date: 20101208
  Transmission Date: 20110411
  Serious: Yes (Other)
  Sender: FDA-Public Use
  Company Number: US-CELGENEUS-163-21880-10102301

PATIENT
  Sex: Male

DRUGS (4)
  1. REVLIMID [Suspect]
     Indication: MYELODYSPLASTIC SYNDROME
     Route: 048
     Dates: start: 20090316
  2. REVLIMID [Suspect]
     Route: 048
     Dates: start: 20100801
  3. ARANESP [Concomitant]
     Route: 065
  4. WHOLE BLOOD [Concomitant]
     Route: 065

REACTIONS (2)
  - ANAEMIA [None]
  - ECCHYMOSIS [None]
